FAERS Safety Report 4299548-2 (Version None)
Quarter: 2004Q1

REPORT INFORMATION
  Report Type: 
  Country: None (occurrence: None)
  Receive Date: 20040217
  Receipt Date: 20040204
  Transmission Date: 20041129
  Serious: Yes (Death, Life-Threatening)
  Sender: FDA-Public Use
  Company Number: GB-JNJFOC-20031004597

PATIENT
  Age: 75 Year
  Sex: Female

DRUGS (7)
  1. REMICADE [Suspect]
     Indication: RHEUMATOID ARTHRITIS
     Dosage: INTRAVENOUS
     Route: 042
     Dates: start: 20021217, end: 20031003
  2. ATENOLOL [Concomitant]
  3. BENDROFLUAZIDE (BENDROFLUMETHIAZIDE) [Concomitant]
  4. MELOXICAM (MELOXICAM) [Concomitant]
  5. FOLIC ACID [Concomitant]
  6. PREDNISOLONE [Concomitant]
  7. THYROXINE (LEVOTHYROXINE SODIUM) [Concomitant]

REACTIONS (4)
  - CELLULITIS [None]
  - CHOLANGITIS [None]
  - MULTI-ORGAN FAILURE [None]
  - SEPSIS [None]
